FAERS Safety Report 6162915-6 (Version None)
Quarter: 2009Q2

REPORT INFORMATION
  Report Type: 
  Country: None (occurrence: None)
  Receive Date: 20090421
  Receipt Date: 20090205
  Transmission Date: 20091009
  Serious: No
  Sender: FDA-Public Use
  Company Number: US-ASTRAZENECA-2009UW03401

PATIENT
  Age: 49 Year
  Sex: Female

DRUGS (1)
  1. METOPROLOL SUCCINATE [Suspect]
     Dosage: UNKNOWN
     Route: 048
     Dates: start: 20070809

REACTIONS (3)
  - DEPRESSED MOOD [None]
  - HEART RATE DECREASED [None]
  - LETHARGY [None]
